FAERS Safety Report 14696173 (Version 1)
Quarter: 2018Q1

REPORT INFORMATION
  Report Type: Spontaneous
  Country: US (occurrence: US)
  Receive Date: 20180329
  Receipt Date: 20180329
  Transmission Date: 20180509
  Serious: No
  Sender: FDA-Public Use
  Company Number: US-SA-2017SA191780

PATIENT
  Age: 56 Year
  Sex: Male

DRUGS (1)
  1. ALLEGRA D-12 HOUR [Suspect]
     Active Substance: FEXOFENADINE HYDROCHLORIDE\PSEUDOEPHEDRINE HYDROCHLORIDE
     Indication: MULTIPLE ALLERGIES
     Route: 048

REACTIONS (7)
  - Nausea [Unknown]
  - Balance disorder [Unknown]
  - Eye irritation [Unknown]
  - Nasal congestion [Unknown]
  - Product use issue [Unknown]
  - Sinus disorder [Unknown]
  - Therapeutic response decreased [Unknown]
